FAERS Safety Report 6733264-X (Version None)
Quarter: 2010Q2

REPORT INFORMATION
  Report Type: 
  Country: None (occurrence: None)
  Receive Date: 20100520
  Receipt Date: 20100505
  Transmission Date: 20101027
  Serious: Yes (Other)
  Sender: FDA-Public Use
  Company Number: US-SHIRE-ALL1-2010-02657

PATIENT

DRUGS (1)
  1. FOSRENOL [Suspect]
     Indication: HYPERPHOSPHATAEMIA
     Dosage: 1000 MG, 2X/DAY:BID
     Route: 048
     Dates: start: 20080101, end: 20100301

REACTIONS (4)
  - CATHETER SITE INFECTION [None]
  - NAUSEA [None]
  - RETCHING [None]
  - VOMITING [None]
